FAERS Safety Report 17615088 (Version 7)
Quarter: 2020Q3

REPORT INFORMATION
  Report Type: Other
  Country: DE (occurrence: DE)
  Receive Date: 20200402
  Receipt Date: 20200908
  Transmission Date: 20201102
  Serious: Yes (Life-Threatening, Hospitalization, Other)
  Sender: FDA-Public Use
  Company Number: DE-LUPIN PHARMACEUTICALS INC.-2020-01533

PATIENT
  Age: 69 Year
  Sex: Male
  Weight: 77 kg

DRUGS (22)
  1. SIMVASTATIN. [Interacting]
     Active Substance: SIMVASTATIN
     Dosage: 50 MILLIGRAM, QD
     Route: 065
     Dates: start: 201808
  2. PROCORALAN [Interacting]
     Active Substance: IVABRADINE
     Indication: CARDIAC DISORDER
     Dosage: 7.5 MILLIGRAM, QD (1?0?0 FILM?COATED TABLET)
     Route: 065
     Dates: start: 201808
  3. ELIQUIS [Interacting]
     Active Substance: APIXABAN
     Indication: ATRIAL FIBRILLATION
     Dosage: 5 MILLIGRAM, BID (1?0?1)
     Route: 065
     Dates: start: 201808
  4. ELIQUIS [Interacting]
     Active Substance: APIXABAN
     Indication: CEREBROVASCULAR ACCIDENT PROPHYLAXIS
  5. JANUMET [Interacting]
     Active Substance: METFORMIN HYDROCHLORIDE\SITAGLIPTIN PHOSPHATE
     Indication: DIABETES MELLITUS
     Dosage: 1 DOSAGE FORM, BID (1?0?1)
     Route: 065
     Dates: start: 201808
  6. CARVEDILOL TABLETS 25 MG [Suspect]
     Active Substance: CARVEDILOL
     Indication: CARDIAC DISORDER
     Dosage: 25 MILLIGRAM, BID (1?0?1)
     Route: 065
     Dates: start: 201808
  7. AMLODIPINE [Interacting]
     Active Substance: AMLODIPINE BESYLATE
     Indication: HYPERTENSION
     Dosage: 5 MILLIGRAM, BID (1?0?1 TABLET)
     Route: 065
     Dates: start: 201808
  8. SIMVASTATIN. [Interacting]
     Active Substance: SIMVASTATIN
     Indication: BLOOD CHOLESTEROL
     Dosage: 40 MILLIGRAM, QD (0?0?1) (TABLET)
     Route: 048
     Dates: start: 20110506
  9. SIMVASTATIN. [Interacting]
     Active Substance: SIMVASTATIN
     Indication: CORONARY ARTERY DISEASE
     Dosage: 40 MILLIGRAM, QD (0?0?1, TABLET, AT NIGHT)
     Route: 065
     Dates: start: 201808
  10. SIMVASTATIN. [Interacting]
     Active Substance: SIMVASTATIN
     Indication: DIABETES MELLITUS
     Dosage: 10 MILLIGRAM, QD
     Route: 065
     Dates: start: 201808
  11. SIMVASTATIN. [Interacting]
     Active Substance: SIMVASTATIN
     Indication: HYPERTENSION
     Dosage: 15 INTERNATIONAL UNIT, QD
     Route: 065
     Dates: start: 201808
  12. MILGAMMA PROTEKT [Interacting]
     Active Substance: BENFOTIAMINE
     Indication: CARDIOVASCULAR DISORDER
  13. MILGAMMA PROTEKT [Interacting]
     Active Substance: BENFOTIAMINE
     Indication: CEREBROVASCULAR ACCIDENT PROPHYLAXIS
  14. RAMIPRIL. [Interacting]
     Active Substance: RAMIPRIL
     Indication: HYPERTENSION
     Dosage: 5 MILLIGRAM, BID (1?0?1 TABLET)
     Route: 065
     Dates: start: 201808
  15. INSULIN GLARGINE [Interacting]
     Active Substance: INSULIN GLARGINE
     Indication: DIABETES MELLITUS
     Dosage: 15 INTERNATIONAL UNIT, QD (15 IU IN THE EVENING)
     Route: 065
     Dates: start: 201808
  16. AVASTIN [Interacting]
     Active Substance: BEVACIZUMAB
     Indication: DIABETIC RETINAL OEDEMA
     Dosage: UNK (INJECT INTO THE RIGHT EYE AT 1.30 P.M.)
     Route: 031
     Dates: start: 20200115
  17. SPIRONOLACTON [Interacting]
     Active Substance: SPIRONOLACTONE
     Indication: CARDIAC DISORDER
     Dosage: 50 MILLIGRAM, QD (1?0?0 TABLET)
     Route: 065
     Dates: start: 201808
  18. SPIRONOLACTON [Interacting]
     Active Substance: SPIRONOLACTONE
     Indication: CORONARY ARTERY DISEASE
     Dosage: 50 MILLIGRAM, QD (1?0?0 TABLET)
     Route: 048
     Dates: start: 20110506
  19. LEVETIRACETAM. [Concomitant]
     Active Substance: LEVETIRACETAM
     Indication: PRODUCT USED FOR UNKNOWN INDICATION
     Dosage: 2 DOSAGE FORM, QD (1?0?1, FILM?COATED TABLET)
     Route: 065
  20. MILGAMMA PROTEKT [Interacting]
     Active Substance: BENFOTIAMINE
     Indication: CARDIOVASCULAR DISORDER
     Dosage: 300 MILLIGRAM, QD
     Route: 065
     Dates: start: 201808
  21. TORASEMID [Interacting]
     Active Substance: TORSEMIDE
     Indication: RENAL DISORDER
     Dosage: 10 MILLIGRAM, QD (1?0?0 TABLET)
     Route: 065
     Dates: start: 201808
  22. ALLOPURINOL. [Interacting]
     Active Substance: ALLOPURINOL
     Indication: GOUT
     Dosage: 100 MILLIGRAM, QD (TABLET)
     Route: 065
     Dates: start: 201808

REACTIONS (9)
  - Muscle spasms [Recovered/Resolved]
  - Product use issue [Unknown]
  - Off label use [Unknown]
  - Movement disorder [Recovered/Resolved]
  - Seizure [Recovered/Resolved]
  - Eye movement disorder [Recovered/Resolved]
  - Oculogyric crisis [Recovered/Resolved]
  - Drug interaction [Unknown]
  - Status epilepticus [Recovering/Resolving]

NARRATIVE: CASE EVENT DATE: 201808
